FAERS Safety Report 6282905-2 (Version None)
Quarter: 2009Q3

REPORT INFORMATION
  Report Type: 
  Country: None (occurrence: None)
  Receive Date: 20090724
  Receipt Date: 20090717
  Transmission Date: 20100115
  Serious: Yes (Other)
  Sender: FDA-Public Use
  Company Number: B0585515A

PATIENT
  Age: 31 Year
  Sex: Female

DRUGS (2)
  1. ALLI [Suspect]
     Dosage: 60MG THREE TIMES PER DAY
     Route: 048
     Dates: start: 20090701
  2. VITAMIN COMPLEX [Concomitant]

REACTIONS (3)
  - BLOOD PRESSURE DECREASED [None]
  - DIARRHOEA [None]
  - SYNCOPE [None]
